FAERS Safety Report 22074663 (Version 1)
Quarter: 2023Q1

REPORT INFORMATION
  Report Type: Spontaneous
  Country: CA (occurrence: CA)
  Receive Date: 20230308
  Receipt Date: 20230308
  Transmission Date: 20230417
  Serious: Yes (Other)
  Sender: FDA-Public Use
  Company Number: CA-PFIZER INC-PV202300027244

PATIENT
  Age: 4 Year
  Sex: Female

DRUGS (1)
  1. RAPAMUNE [Suspect]
     Active Substance: SIROLIMUS
     Dosage: UNK
     Route: 048

REACTIONS (3)
  - Condition aggravated [Unknown]
  - Off label use [Unknown]
  - Therapeutic response unexpected [Unknown]
